FAERS Safety Report 23544441 (Version 1)
Quarter: 2024Q1

REPORT INFORMATION
  Report Type: Spontaneous
  Country: TN (occurrence: TN)
  Receive Date: 20240220
  Receipt Date: 20240220
  Transmission Date: 20240409
  Serious: Yes (Other)
  Sender: FDA-Public Use
  Company Number: TN-JNJFOC-20240236105

PATIENT
  Age: 25 Year
  Sex: Female

DRUGS (2)
  1. REMICADE [Suspect]
     Active Substance: INFLIXIMAB
     Indication: Rheumatoid arthritis
     Route: 041
  2. REMICADE [Suspect]
     Active Substance: INFLIXIMAB
     Dosage: LAST INJECTION OF INFLIXIMAB HAS BEEN RECEIVED 1 WEEK?BEFORE SYMPTOMATOLOGY.
     Route: 041

REACTIONS (1)
  - Uveitis [Recovering/Resolving]
